FAERS Safety Report 7592676-5 (Version None)
Quarter: 2011Q2

REPORT INFORMATION
  Report Type: 
  Country: None (occurrence: None)
  Receive Date: 20110628
  Receipt Date: 20110615
  Transmission Date: 20111010
  Serious: Yes (Hospitalization)
  Sender: FDA-Public Use
  Company Number: 1000019123

PATIENT
  Age: 59 Year
  Sex: Female
  Weight: 85 kg

DRUGS (3)
  1. SERETIDE (SALMETEROL, FLUTICASONE) [Concomitant]
  2. SPIRIVA (TAIOTROPIUIM BROMIDE) [Concomitant]
  3. ROFLUMILAST (ROFLUMILAST) (TABLETS) [Suspect]
     Indication: CHRONIC OBSTRUCTIVE PULMONARY DISEASE
     Dosage: 500 MCG (500 MCG, 1 IN 1 D)
     Dates: start: 20101122

REACTIONS (2)
  - WEIGHT DECREASED [None]
  - DIVERTICULITIS [None]
